FAERS Safety Report 5470839-2 (Version None)
Quarter: 2007Q3

REPORT INFORMATION
  Report Type: 
  Country: None (occurrence: None)
  Receive Date: 20070925
  Receipt Date: 20070911
  Transmission Date: 20080115
  Serious: Yes (Other)
  Sender: FDA-Public Use
  Company Number: 6037967

PATIENT
  Sex: Male

DRUGS (7)
  1. DICLOFENAC DURA RETARDTABLETS (100 MG, TABLET) (DICLOFENAC SODIUM) [Suspect]
     Indication: SUICIDE ATTEMPT
     Dosage: 1000 MG (100 MG, 10 IN 1 ONCE) ORAL
     Route: 048
  2. ENEAS (TABLET) [Suspect]
     Indication: SUICIDE ATTEMPT
     Dosage: 10 DOSAGE FORMS (1 DOSAGE FORMS, 10 IN 1 ONCE) ORAL
     Route: 048
  3. AMLODIPINE [Suspect]
     Indication: SUICIDE ATTEMPT
     Dosage: 100 MG (10 MG, 10 IN 1 ONCE) ORAL
     Route: 048
  4. AMLODIPINE BESYLATE [Suspect]
     Indication: SUICIDE ATTEMPT
     Dosage: 440 MG (10 MG, 44 IN 1 ONCE) ORAL
     Route: 048
  5. ENALAPRIL MALEATE [Suspect]
     Indication: SUICIDE ATTEMPT
     Dosage: 10 DOSAGE FORMS (1 DOSAGE FORMS, 10 IN 1 ONCE) ORAL
     Route: 048
  6. CARMEN 20 (TABLET) (LERCANIDIPINE) [Suspect]
     Indication: SUICIDE ATTEMPT
     Dosage: 20 DOSAGE FORMS (1 DOSAGE FORMS, 20 IN 1 ONCE) ORAL
     Route: 048
  7. ENALAPRIL MALEATE AND HYDROCHLOROTHIAZIDE [Suspect]
     Indication: SUICIDE ATTEMPT
     Dosage: 10 DOSAGE FORMS (1 DOSAGE FORMS, 10 IN 1 ONCE) ORAL
     Route: 048

REACTIONS (2)
  - OVERDOSE [None]
  - SUICIDE ATTEMPT [None]
